FAERS Safety Report 15121932 (Version 1)
Quarter: 2018Q3

REPORT INFORMATION
  Report Type: Spontaneous
  Country: JP (occurrence: JP)
  Receive Date: 20180709
  Receipt Date: 20180709
  Transmission Date: 20181010
  Serious: Yes (Other)
  Sender: FDA-Public Use
  Company Number: JP-PFIZER INC-2018267192

PATIENT
  Age: 53 Year
  Sex: Female

DRUGS (1)
  1. AZULFIDINE EN?TABS [Suspect]
     Active Substance: SULFASALAZINE
     Dosage: UNK
     Route: 048
     Dates: start: 201707, end: 201707

REACTIONS (2)
  - Oculomucocutaneous syndrome [Unknown]
  - Stevens-Johnson syndrome [Unknown]
